FAERS Safety Report 6716986-6 (Version None)
Quarter: 2010Q2

REPORT INFORMATION
  Report Type: 
  Country: None (occurrence: None)
  Receive Date: 20100510
  Receipt Date: 20100430
  Transmission Date: 20101027
  Serious: Yes (Other)
  Sender: FDA-Public Use
  Company Number: US-JNJFOC-20100500472

PATIENT
  Sex: Female

DRUGS (2)
  1. TOPAMAX [Suspect]
     Indication: CONVULSION PROPHYLAXIS
     Route: 048
  2. TOPAMAX [Suspect]
     Route: 048

REACTIONS (5)
  - ADVERSE EVENT [None]
  - CATARACT [None]
  - EYE HAEMORRHAGE [None]
  - SWOLLEN TONGUE [None]
  - TONGUE DISORDER [None]
